FAERS Safety Report 15969519 (Version 5)
Quarter: 2019Q2

REPORT INFORMATION
  Report Type: Spontaneous
  Country: JP (occurrence: JP)
  Receive Date: 20190215
  Receipt Date: 20190524
  Transmission Date: 20190711
  Serious: Yes (Other)
  Sender: FDA-Public Use
  Company Number: JP-PFM-2019-01846

PATIENT

DRUGS (6)
  1. HEMANGIOL [Suspect]
     Active Substance: PROPRANOLOL HYDROCHLORIDE
     Dosage: 3 MG/KG, BID (2/DAY)
     Route: 048
     Dates: start: 20180403, end: 20190201
  2. HEPARINOID [Concomitant]
     Active Substance: CHONDROITIN SULFATE (BOVINE)
     Indication: ECZEMA
     Dosage: UNK
     Route: 061
     Dates: start: 20180226
  3. PROPETO [Concomitant]
     Active Substance: PETROLATUM
     Indication: ECZEMA
     Dosage: UNK
     Route: 061
     Dates: start: 20180226
  4. LIDOMEX [Concomitant]
     Active Substance: PREDNISOLONE VALERATE ACETATE
     Indication: ECZEMA
     Dosage: UNK
     Route: 061
     Dates: start: 20180626
  5. HEMANGIOL [Suspect]
     Active Substance: PROPRANOLOL HYDROCHLORIDE
     Dosage: 2 MG/KG, BID (2/DAY)
     Route: 048
     Dates: start: 20180327, end: 20180402
  6. HEMANGIOL [Suspect]
     Active Substance: PROPRANOLOL HYDROCHLORIDE
     Indication: INFANTILE HAEMANGIOMA
     Dosage: 1 MG/KG, BID (2/DAY)
     Route: 048
     Dates: start: 20180320, end: 20180326

REACTIONS (6)
  - Hypoglycaemia [Recovered/Resolved]
  - Off label use [Unknown]
  - Drug titration error [Unknown]
  - Hypothermia [Recovered/Resolved]
  - Product use issue [Unknown]
  - Product administered to patient of inappropriate age [Unknown]

NARRATIVE: CASE EVENT DATE: 20190201
